FAERS Safety Report 25433765 (Version 1)
Quarter: 2025Q2

REPORT INFORMATION
  Report Type: Report from Study
  Country: US (occurrence: US)
  Receive Date: 20250613
  Receipt Date: 20250613
  Transmission Date: 20250716
  Serious: Yes (Other)
  Sender: ROCHE
  Company Number: US-ROCHE-10000309342

PATIENT
  Sex: Female

DRUGS (2)
  1. RITUXAN [Suspect]
     Active Substance: RITUXIMAB
     Indication: Neuromyelitis optica spectrum disorder
     Route: 065
  2. ENSPRYNG [Suspect]
     Active Substance: SATRALIZUMAB-MWGE
     Indication: Neuromyelitis optica spectrum disorder
     Route: 065

REACTIONS (5)
  - Off label use [Unknown]
  - Neuromyelitis optica spectrum disorder [Recovered/Resolved]
  - Stress [Recovered/Resolved]
  - Dizziness [Recovered/Resolved]
  - Visual field defect [Unknown]
